FAERS Safety Report 17764552 (Version 2)
Quarter: 2020Q4

REPORT INFORMATION
  Report Type: Report from Study
  Country: SE (occurrence: SE)
  Receive Date: 20200511
  Receipt Date: 20201030
  Transmission Date: 20210113
  Serious: Yes (Hospitalization, Other)
  Sender: FDA-Public Use
  Company Number: SE-BRISTOL-MYERS SQUIBB COMPANY-BMS-2019-038896

PATIENT
  Age: 75 Year
  Sex: Male

DRUGS (8)
  1. INNOHEP [Concomitant]
     Active Substance: TINZAPARIN SODIUM
     Indication: PRODUCT USED FOR UNKNOWN INDICATION
     Dosage: 1 DOSAGE FORM
     Route: 058
     Dates: start: 20190130
  2. BETNOVATE [Concomitant]
     Active Substance: BETAMETHASONE
     Indication: PRODUCT USED FOR UNKNOWN INDICATION
     Dosage: 0.1 PERCENT, AS NEEDED
     Route: 061
  3. IMO-2125 [Suspect]
     Active Substance: TILSOTOLIMOD SODIUM
     Indication: METASTATIC MALIGNANT MELANOMA
     Dosage: 8 MILLIGRAM
     Route: 036
     Dates: start: 20190131, end: 20190319
  4. IMO-2125 [Suspect]
     Active Substance: TILSOTOLIMOD SODIUM
     Dosage: 4 MILLIGRAM
     Route: 036
     Dates: start: 20190410
  5. METOPROLOL. [Concomitant]
     Active Substance: METOPROLOL
     Indication: PRODUCT USED FOR UNKNOWN INDICATION
     Dosage: 100 MILLIGRAM
     Route: 048
     Dates: start: 2004
  6. PANODIL [Concomitant]
     Active Substance: ACETAMINOPHEN
     Indication: PRODUCT USED FOR UNKNOWN INDICATION
     Dosage: 1 GRAM
     Route: 048
     Dates: start: 20190131, end: 20190327
  7. IPILIMUMAB [Suspect]
     Active Substance: IPILIMUMAB
     Indication: METASTATIC MALIGNANT MELANOMA
     Dosage: 267 MILLIGRAM
     Route: 042
     Dates: start: 20190205
  8. CLEMASTINE [Concomitant]
     Active Substance: CLEMASTINE
     Indication: PRODUCT USED FOR UNKNOWN INDICATION
     Dosage: AS NEEDED
     Route: 048
     Dates: start: 20190226

REACTIONS (1)
  - Pneumonia [Recovered/Resolved]

NARRATIVE: CASE EVENT DATE: 20190327
